FAERS Safety Report 7628673-0 (Version None)
Quarter: 2011Q3

REPORT INFORMATION
  Report Type: 
  Country: None (occurrence: None)
  Receive Date: 20110722
  Receipt Date: 20110714
  Transmission Date: 20111222
  Serious: Yes (Other)
  Sender: FDA-Public Use
  Company Number: US-US-EMD SERONO, INC.-7071560

PATIENT
  Sex: Female

DRUGS (1)
  1. REBIF [Suspect]
     Indication: MULTIPLE SCLEROSIS
     Route: 058
     Dates: start: 20070706

REACTIONS (6)
  - WEIGHT INCREASED [None]
  - FATIGUE [None]
  - HOT FLUSH [None]
  - MEMORY IMPAIRMENT [None]
  - PITUITARY TUMOUR BENIGN [None]
  - WEIGHT DECREASED [None]
